FAERS Safety Report 5237703-5 (Version None)
Quarter: 2007Q1

REPORT INFORMATION
  Report Type: 
  Country: None (occurrence: None)
  Receive Date: 20070214
  Receipt Date: 20070209
  Transmission Date: 20070707
  Serious: Yes (Death)
  Sender: FDA-Public Use
  Company Number: HQWYE632117AUG06

PATIENT
  Sex: Male
  Weight: 94.89 kg

DRUGS (16)
  1. EFFEXOR XR [Interacting]
     Indication: DEPRESSION
     Route: 048
  2. NIASPAN [Interacting]
     Indication: HYPERCHOLESTEROLAEMIA
     Dosage: 1000 MG ONCE
     Route: 048
     Dates: start: 20060611, end: 20060611
  3. NIASPAN [Interacting]
     Indication: HIGH DENSITY LIPOPROTEIN DECREASED
  4. WELLBUTRIN [Interacting]
     Indication: DEPRESSION
     Route: 048
  5. TRAZODONE HCL [Interacting]
     Indication: DEPRESSION
     Route: 048
  6. TENORMIN [Interacting]
     Indication: TACHYARRHYTHMIA
     Route: 048
  7. LANOXIN [Interacting]
     Indication: TACHYARRHYTHMIA
     Route: 048
  8. GLUCOPHAGE [Interacting]
     Indication: DIABETES MELLITUS
     Route: 048
  9. GLUCOTROL XL [Interacting]
     Indication: DIABETES MELLITUS
     Route: 048
  10. ACTOS [Interacting]
     Indication: DIABETES MELLITUS
     Route: 048
  11. TRICOR [Interacting]
     Indication: DYSLIPIDAEMIA
     Route: 048
  12. LANTUS [Interacting]
     Indication: DIABETES MELLITUS
     Dosage: INCREASED FROM 65 UNITS TO 70 UNITS DAILY
     Route: 058
     Dates: start: 20060609
  13. LIPITOR [Interacting]
     Dosage: UNKNOWN
     Route: 048
  14. ASCORBIC ACID/ERGOCALCIFEROL/FOLIC ACID/NICOTINAMIDE/PANTHENOL/RETINOL [Suspect]
     Dosage: UNKNOWN
     Route: 048
  15. RISPERDAL [Suspect]
     Dosage: 3 MG UNKNOWN FREQUENCY
     Route: 048
  16. LORAZEPAM [Interacting]
     Indication: DEPRESSION
     Route: 048

REACTIONS (2)
  - DRUG INTERACTION [None]
  - MYOCARDIAL INFARCTION [None]
